FAERS Safety Report 23181209 (Version 4)
Quarter: 2024Q2

REPORT INFORMATION
  Report Type: Report from Study
  Country: US (occurrence: US)
  Receive Date: 20231114
  Receipt Date: 20240413
  Transmission Date: 20240715
  Serious: No
  Sender: FDA-Public Use
  Company Number: US-AstraZeneca-CH-00503675A

PATIENT
  Sex: Male

DRUGS (4)
  1. SOLIRIS [Suspect]
     Active Substance: ECULIZUMAB
     Indication: Myasthenia gravis
     Dosage: UNK
     Route: 065
  2. TESTOSTERONE [Concomitant]
     Active Substance: TESTOSTERONE
     Indication: Product used for unknown indication
     Dosage: UNK
     Route: 065
  3. IRON CHEWS [Concomitant]
     Active Substance: IRON PENTACARBONYL
     Indication: Product used for unknown indication
     Dosage: UNK
     Route: 065
  4. PREDNISONE ACETATE [Concomitant]
     Active Substance: PREDNISONE ACETATE
     Indication: Product used for unknown indication
     Dosage: UNK
     Route: 065

REACTIONS (7)
  - Diplopia [Unknown]
  - Ocular discomfort [Unknown]
  - Eyelid ptosis [Unknown]
  - Dyspnoea [Unknown]
  - Gait disturbance [Unknown]
  - Blood pressure increased [Unknown]
  - Therapeutic response shortened [Unknown]
